FAERS Safety Report 15259635 (Version 1)
Quarter: 2018Q4

REPORT INFORMATION
  Report Type: Spontaneous
  Country: MX (occurrence: MX)
  Receive Date: 20180809
  Receipt Date: 20180809
  Transmission Date: 20190204
  Serious: Yes (Other)
  Sender: FDA-Public Use
  Company Number: MX-APOTEX-2018AP018857

PATIENT
  Age: 69 Year
  Sex: Female

DRUGS (1)
  1. PERIAMID [Suspect]
     Active Substance: PRAMIPEXOLE DIHYDROCHLORIDE
     Indication: PARKINSON^S DISEASE
     Dosage: 1 DF, QD (SIX TABLETS OF 0.5 MG AT THE SAME TIME EVERY DAY)
     Route: 065

REACTIONS (3)
  - Self-medication [Unknown]
  - Pituitary haemorrhage [Unknown]
  - Treatment noncompliance [Unknown]
